FAERS Safety Report 8385713-1 (Version None)
Quarter: 2012Q2

REPORT INFORMATION
  Report Type: 
  Country: None (occurrence: None)
  Receive Date: 20120523
  Receipt Date: 20120515
  Transmission Date: 20120825
  Serious: Yes (Death, Hospitalization, Other)
  Sender: FDA-Public Use
  Company Number: IMP_05898_2012

PATIENT
  Age: 60 Year
  Sex: Male

DRUGS (3)
  1. LIPID EMULSION (NOT SPECIFIED) [Suspect]
     Dosage: (DF INTRAVENOUS DRIP)
     Route: 041
  2. BUPROPION HCL [Suspect]
     Indication: PRODUCT USED FOR UNKNOWN INDICATION
     Dosage: (NOT THE PRESCRIBED AMOUNT)
  3. LIPID EMULSION (NOT SPECIFIED) [Suspect]
     Indication: CARDIOTOXICITY
     Dosage: (DF INTRAVENOUS BOLUS)
     Route: 040

REACTIONS (3)
  - DELIRIUM [None]
  - SHOCK [None]
  - CARDIOTOXICITY [None]
